FAERS Safety Report 6255898-1 (Version None)
Quarter: 2009Q3

REPORT INFORMATION
  Report Type: 
  Country: None (occurrence: None)
  Receive Date: 20090703
  Receipt Date: 20090629
  Transmission Date: 20100115
  Serious: Yes (Death, Hospitalization, Disabling)
  Sender: FDA-Public Use
  Company Number: US-ELI_LILLY_AND_COMPANY-US200905003933

PATIENT
  Age: 80 Year
  Sex: Male

DRUGS (3)
  1. GEMZAR [Suspect]
     Indication: BLADDER TRANSITIONAL CELL CARCINOMA
     Dosage: UNK, UNK
     Dates: start: 20080401, end: 20090101
  2. GEMZAR [Suspect]
     Dates: start: 20090101
  3. CARBOPLATIN [Concomitant]
     Indication: BLADDER TRANSITIONAL CELL CARCINOMA
     Dosage: UNK, UNK

REACTIONS (3)
  - CONVULSION [None]
  - DEATH [None]
  - HAEMOLYTIC URAEMIC SYNDROME [None]
